FAERS Safety Report 7481375-6 (Version None)
Quarter: 2011Q2

REPORT INFORMATION
  Report Type: 
  Country: None (occurrence: None)
  Receive Date: 20110516
  Receipt Date: 20110422
  Transmission Date: 20111010
  Serious: No
  Sender: FDA-Public Use
  Company Number: US-B.I. PHARMACEUTICALS,INC./RIDGEFIELD-2011-BP-05297BP

PATIENT
  Sex: Male

DRUGS (18)
  1. PRADAXA [Suspect]
     Indication: ATRIAL FIBRILLATION
  2. LIPITOR [Concomitant]
     Indication: BLOOD CHOLESTEROL INCREASED
     Dosage: 40 MG
     Route: 048
  3. DIGOXIN [Concomitant]
     Indication: CARDIAC DISORDER
     Dosage: 0.125 MG
     Route: 048
  4. LEVOTHYROXINE SODIUM [Concomitant]
     Indication: THYROID DISORDER
     Dosage: 175 MCG
     Route: 048
  5. CYMBALTA [Concomitant]
     Indication: DEPRESSION
     Dosage: 60 MG
     Route: 048
  6. LASIX [Concomitant]
     Indication: DIURETIC THERAPY
     Dosage: 40 MG
     Route: 048
  7. POTASSIUM CHLORIDE [Concomitant]
     Indication: PROPHYLAXIS
     Dosage: 20 MEQ
     Route: 048
  8. AMITRIPTYLENE [Concomitant]
     Route: 048
  9. PRADAXA [Suspect]
     Indication: ANTICOAGULANT THERAPY
     Dosage: 300 MG
     Route: 048
     Dates: start: 20110204
  10. PRADAXA [Suspect]
     Indication: CARDIAC DISORDER
  11. GABAPENTIN [Concomitant]
     Indication: ARTHRITIS
     Route: 048
  12. DOXYCYCLINE [Concomitant]
     Indication: PNEUMONIA
     Dosage: 200 MG
     Route: 048
  13. HYDROCODONE BITARTRATE AND ACETAMINOPHEN [Suspect]
     Indication: ARTHRITIS
     Route: 048
     Dates: start: 20110201
  14. MELPHALAN HYDROCHLORIDE [Concomitant]
     Indication: INFECTION
     Dosage: 5 MG
     Route: 048
     Dates: start: 20010101
  15. SEROXAT [Concomitant]
     Dosage: 10 MG
     Route: 048
  16. CARVIDOLOL [Concomitant]
     Indication: CARDIAC DISORDER
     Dosage: 6.25 MG
     Route: 048
  17. GLIPIZIDE [Concomitant]
     Indication: BLOOD GLUCOSE ABNORMAL
     Dosage: 1.25 MG
     Route: 048
     Dates: start: 20110201
  18. OXAZEPAM [Concomitant]
     Dates: start: 20110204

REACTIONS (1)
  - SOMNOLENCE [None]
